FAERS Safety Report 8947516 (Version 2)
Quarter: 2015Q2

REPORT INFORMATION
  Report Type: Report from Study
  Country: FR (occurrence: FR)
  Receive Date: 20121204
  Receipt Date: 20150508
  Transmission Date: 20150821
  Serious: Yes (Death, Hospitalization, Other)
  Sender: FDA-Public Use
  Company Number: FR-ROCHE-1163232

PATIENT
  Age: 73 Year
  Sex: Male

DRUGS (3)
  1. CORTANCYL [Concomitant]
     Active Substance: PREDNISONE
     Route: 065
  2. RITUXIMAB [Suspect]
     Active Substance: RITUXIMAB
     Indication: RHEUMATOID ARTHRITIS
     Route: 041
     Dates: start: 20070425, end: 20071029
  3. METHOTREXATE [Concomitant]
     Active Substance: METHOTREXATE

REACTIONS (9)
  - Squamous cell carcinoma [Not Recovered/Not Resolved]
  - Bronchopneumonia [Recovered/Resolved]
  - H1N1 influenza [Recovered/Resolved]
  - Pleural effusion [Fatal]
  - Pneumonia pneumococcal [Recovered/Resolved]
  - Pneumonia [Recovered/Resolved]
  - Infection [Unknown]
  - Dyspnoea [Recovered/Resolved]
  - Arthropathy [Recovered/Resolved]

NARRATIVE: CASE EVENT DATE: 20070516
